FAERS Safety Report 25512817 (Version 1)
Quarter: 2025Q3

REPORT INFORMATION
  Report Type: Spontaneous
  Country: US (occurrence: US)
  Receive Date: 20250703
  Receipt Date: 20250703
  Transmission Date: 20251020
  Serious: No
  Sender: BAUSCH AND LOMB
  Company Number: None

PATIENT
  Sex: Male

DRUGS (5)
  1. BUPROPION [Suspect]
     Active Substance: BUPROPION
     Indication: Depression
     Route: 065
  2. ENZALUTAMIDE [Concomitant]
     Active Substance: ENZALUTAMIDE
     Indication: Hormone therapy
  3. DEGARELIX [Concomitant]
     Active Substance: DEGARELIX
     Indication: Hormone therapy
  4. VRAYLAR [Concomitant]
     Active Substance: CARIPRAZINE
     Indication: Depression
  5. CAPLYTA [Concomitant]
     Active Substance: LUMATEPERONE
     Indication: Product used for unknown indication

REACTIONS (1)
  - Abnormal dreams [Unknown]
